FAERS Safety Report 14027543 (Version 1)
Quarter: 2017Q3

REPORT INFORMATION
  Report Type: Spontaneous
  Country: IR (occurrence: IR)
  Receive Date: 20170929
  Receipt Date: 20170929
  Transmission Date: 20171128
  Serious: Yes (Hospitalization, Other)
  Sender: FDA-Public Use
  Company Number: IR-ACCORD-059208

PATIENT
  Age: 88 Year
  Sex: Female

DRUGS (1)
  1. METHOTREXATE. [Suspect]
     Active Substance: METHOTREXATE
     Dosage: 1.25 MG FOR 5 CONSECUTIVE MONTHS, 2.5 MG FIVE DAYS A WEEK IN THE LAST MONTH

REACTIONS (14)
  - Abdominal pain [Unknown]
  - Dyspepsia [Unknown]
  - Dyspnoea [Unknown]
  - Generalised erythema [Unknown]
  - Asthenia [Unknown]
  - Nausea [Unknown]
  - Pruritus [Unknown]
  - Mucosal inflammation [Unknown]
  - Epistaxis [Unknown]
  - Vomiting [Unknown]
  - Face oedema [Unknown]
  - Gait disturbance [Unknown]
  - Medication error [Unknown]
  - Accidental poisoning [Unknown]
